FAERS Safety Report 10064236 (Version 1)
Quarter: 2014Q1

REPORT INFORMATION
  Report Type: Spontaneous
  Country: US (occurrence: None)
  Receive Date: 20140102
  Receipt Date: 20140102
  Transmission Date: 20141002
  Serious: Yes (Death)
  Sender: FDA-Public Use
  Company Number: 20130122

PATIENT
  Age: 33 Year
  Sex: Female

DRUGS (1)
  1. SUBSYS [Suspect]
     Indication: BREAKTHROUGH PAIN
     Route: 060

REACTIONS (1)
  - Death [None]
